FAERS Safety Report 25373253 (Version 1)
Quarter: 2025Q2

REPORT INFORMATION
  Report Type: Spontaneous
  Country: CN (occurrence: CN)
  Receive Date: 20250529
  Receipt Date: 20250529
  Transmission Date: 20250717
  Serious: Yes (Other)
  Sender: AZURITY PHARMACEUTICALS
  Company Number: CN-AZURITY PHARMACEUTICALS, INC.-AZR202505-001477

PATIENT
  Age: 41 Year
  Sex: Male

DRUGS (2)
  1. AMPHETAMINE SULFATE [Suspect]
     Active Substance: AMPHETAMINE SULFATE
     Indication: Product used for unknown indication
     Dates: start: 201311, end: 201904
  2. TRIUMEQ [Concomitant]
     Active Substance: ABACAVIR SULFATE\DOLUTEGRAVIR SODIUM\LAMIVUDINE
     Indication: HIV infection
     Route: 065

REACTIONS (2)
  - Pulmonary hypertension [Recovered/Resolved]
  - Drug abuse [Unknown]

NARRATIVE: CASE EVENT DATE: 20170801
